FAERS Safety Report 23846102 (Version 5)
Quarter: 2025Q3

REPORT INFORMATION
  Report Type: Other
  Country: US (occurrence: US)
  Receive Date: 20240512
  Receipt Date: 20250916
  Transmission Date: 20251020
  Serious: No
  Sender: TRAVERE THERAPEUTICS
  Company Number: US-TRAVERE-2024TVT00433

PATIENT
  Age: 67 Year
  Sex: Male

DRUGS (2)
  1. FILSPARI [Suspect]
     Active Substance: SPARSENTAN
     Indication: IgA nephropathy
     Route: 048
     Dates: start: 20240416
  2. FILSPARI [Suspect]
     Active Substance: SPARSENTAN
     Route: 048
     Dates: start: 20240430

REACTIONS (5)
  - Blood pressure fluctuation [None]
  - Dizziness postural [Unknown]
  - Hypotension [Recovering/Resolving]
  - Asthenia [Recovering/Resolving]
  - Product administration error [Unknown]
